FAERS Safety Report 21408877 (Version 3)
Quarter: 2023Q2

REPORT INFORMATION
  Report Type: Spontaneous
  Country: US (occurrence: US)
  Receive Date: 20221004
  Receipt Date: 20230405
  Transmission Date: 20230722
  Serious: Yes (Other)
  Sender: FDA-Public Use
  Company Number: US-SA-2022SA394047

PATIENT
  Age: 26 Year
  Sex: Male

DRUGS (6)
  1. ELOCTATE [Suspect]
     Active Substance: EFMOROCTOCOG ALFA
     Dosage: 4500 IU
  2. ELOCTATE [Suspect]
     Active Substance: EFMOROCTOCOG ALFA
     Dosage: 4500 IU
  3. ELOCTATE [Suspect]
     Active Substance: EFMOROCTOCOG ALFA
     Dosage: ONSE DOSE
     Dates: start: 20220921
  4. ELOCTATE [Suspect]
     Active Substance: EFMOROCTOCOG ALFA
     Dosage: ONSE DOSE
     Dates: start: 20220921
  5. ELOCTATE [Suspect]
     Active Substance: EFMOROCTOCOG ALFA
     Dosage: 5800 UNITS/4000 UNITS/3000 UNITS
     Route: 065
  6. ELOCTATE [Suspect]
     Active Substance: EFMOROCTOCOG ALFA
     Dosage: 5800 UNITS/4000 UNITS/3000 UNITS
     Route: 065

REACTIONS (9)
  - Haemorrhage [Recovered/Resolved]
  - Furuncle [Unknown]
  - Pain [Unknown]
  - COVID-19 [Unknown]
  - Oropharyngeal pain [Unknown]
  - Vomiting [Unknown]
  - Pyrexia [Unknown]
  - Animal bite [Recovered/Resolved]
  - Headache [Unknown]

NARRATIVE: CASE EVENT DATE: 20230301
